FAERS Safety Report 4681456-6 (Version None)
Quarter: 2005Q2

REPORT INFORMATION
  Report Type: 
  Country: None (occurrence: None)
  Receive Date: 20050601
  Receipt Date: 20050512
  Transmission Date: 20051028
  Serious: Yes (Hospitalization)
  Sender: FDA-Public Use
  Company Number: US_0505117517

PATIENT
  Age: 15 Year
  Sex: Male
  Weight: 32 kg

DRUGS (1)
  1. HUMATROPE [Suspect]
     Indication: BODY HEIGHT BELOW NORMAL
     Dosage: 10.2 MG WEEK
     Dates: start: 20031031

REACTIONS (1)
  - NEPHROLITHIASIS [None]
